FAERS Safety Report 9339726 (Version 1)
Quarter: 2013Q2

REPORT INFORMATION
  Report Type: Spontaneous
  Country: IL (occurrence: IL)
  Receive Date: 20130610
  Receipt Date: 20130610
  Transmission Date: 20140414
  Serious: Yes (Life-Threatening)
  Sender: FDA-Public Use
  Company Number: PHHY2013IL058179

PATIENT
  Age: 44 Year
  Sex: Male

DRUGS (1)
  1. RITALIN-SR [Suspect]
     Indication: ATTENTION DEFICIT/HYPERACTIVITY DISORDER
     Dosage: 40 MG, UNK
     Route: 048

REACTIONS (2)
  - Coronary artery stenosis [Recovered/Resolved]
  - Chest discomfort [Unknown]
